FAERS Safety Report 8818887 (Version 4)
Quarter: 2013Q1

REPORT INFORMATION
  Report Type: Report from Study
  Country: DE (occurrence: DE)
  Receive Date: 20121001
  Receipt Date: 20130301
  Transmission Date: 20140127
  Serious: Yes (Other)
  Sender: FDA-Public Use
  Company Number: DE-JNJFOC-20120912493

PATIENT
  Age: 58 Year
  Sex: Male
  Weight: 93 kg

DRUGS (4)
  1. USTEKINUMAB [Suspect]
     Indication: PSORIASIS
     Route: 058
     Dates: start: 20110209
  2. AMLODIPINE [Concomitant]
     Dosage: VISIT 8
  3. HCT [Concomitant]
     Dosage: VISIT 8
  4. OLMESARTAN [Concomitant]
     Dosage: VISIT 8

REACTIONS (1)
  - Hypertension [Unknown]
